FAERS Safety Report 8885622 (Version 2)
Quarter: 2012Q4

REPORT INFORMATION
  Report Type: 
  Country: JP (occurrence: JP)
  Receive Date: 20121102
  Receipt Date: 20121116
  Transmission Date: 20130627
  Serious: Yes (Other)
  Sender: FDA-Public Use
  Company Number: JP-AMGEN-JPNSP2012069677

PATIENT
  Age: 78 Year
  Sex: Female

DRUGS (3)
  1. ENBREL [Suspect]
     Indication: RHEUMATOID ARTHRITIS
     Dosage: 50 mg, every 2 weeks
     Route: 058
     Dates: start: 2012
  2. METHOTREXATE SODIUM [Concomitant]
     Dosage: 4 mg, UNK
     Route: 048
  3. ALENDRONATE SODIUM [Concomitant]
     Dosage: UNK

REACTIONS (1)
  - Upper limb fracture [Unknown]
